FAERS Safety Report 24714195 (Version 1)
Quarter: 2024Q4

REPORT INFORMATION
  Report Type: Spontaneous
  Country: DE (occurrence: DE)
  Receive Date: 20241209
  Receipt Date: 20241209
  Transmission Date: 20250115
  Serious: Yes (Other)
  Sender: NOVARTIS
  Company Number: DE-002147023-NVSC2024DE233393

PATIENT
  Sex: Female

DRUGS (1)
  1. BEOVU [Suspect]
     Active Substance: BROLUCIZUMAB-DBLL
     Indication: Age-related macular degeneration
     Dosage: UNK
     Route: 047
     Dates: start: 202411, end: 202411

REACTIONS (3)
  - Uveitis [Recovering/Resolving]
  - Anterior chamber disorder [Recovering/Resolving]
  - Intraocular pressure increased [Recovering/Resolving]

NARRATIVE: CASE EVENT DATE: 20241128
